FAERS Safety Report 12980538 (Version 1)
Quarter: 2016Q4

REPORT INFORMATION
  Report Type: Spontaneous
  Country: CN (occurrence: CN)
  Receive Date: 20161128
  Receipt Date: 20161128
  Transmission Date: 20170207
  Serious: Yes (Other)
  Sender: FDA-Public Use
  Company Number: CN-ABBVIE-16P-035-1792889-00

PATIENT
  Age: 58 Year
  Sex: Female
  Weight: 59 kg

DRUGS (8)
  1. ZYVOX [Suspect]
     Active Substance: LINEZOLID
     Indication: MYCOBACTERIUM ABSCESSUS INFECTION
     Route: 048
     Dates: start: 20160808, end: 20160822
  2. TYGACIL [Concomitant]
     Active Substance: TIGECYCLINE
     Indication: MYCOBACTERIUM ABSCESSUS INFECTION
     Dates: start: 20160808, end: 20160831
  3. TYGACIL [Concomitant]
     Active Substance: TIGECYCLINE
     Indication: LUNG INFECTION
  4. ZYVOX [Suspect]
     Active Substance: LINEZOLID
     Indication: LUNG INFECTION
  5. AMIKACIN SULFATE. [Concomitant]
     Active Substance: AMIKACIN SULFATE
     Indication: MYCOBACTERIUM ABSCESSUS INFECTION
     Dates: start: 20160808, end: 20160831
  6. KLACID [Suspect]
     Active Substance: CLARITHROMYCIN
     Indication: MYCOBACTERIUM ABSCESSUS INFECTION
     Route: 048
     Dates: start: 20160808
  7. KLACID [Suspect]
     Active Substance: CLARITHROMYCIN
     Indication: LUNG INFECTION
  8. AMIKACIN SULFATE. [Concomitant]
     Active Substance: AMIKACIN SULFATE
     Indication: LUNG INFECTION

REACTIONS (6)
  - Dizziness [Recovering/Resolving]
  - Nausea [Recovering/Resolving]
  - Thrombocytopenia [Unknown]
  - Chest discomfort [Unknown]
  - Extrasystoles [Unknown]
  - Palpitations [Recovering/Resolving]

NARRATIVE: CASE EVENT DATE: 2016
